FAERS Safety Report 9134099 (Version 2)
Quarter: 2013Q1

REPORT INFORMATION
  Report Type: Spontaneous
  Country: US (occurrence: US)
  Receive Date: 20130304
  Receipt Date: 20130328
  Transmission Date: 20140127
  Serious: Yes (Hospitalization, Other)
  Sender: FDA-Public Use
  Company Number: US-BIOGENIDEC-2013BI019692

PATIENT
  Age: 46 Year
  Sex: Male

DRUGS (16)
  1. TYSABRI [Suspect]
     Indication: MULTIPLE SCLEROSIS
     Route: 042
     Dates: start: 20071102
  2. ALBUTEROL [Concomitant]
  3. VALACYCLOVIR [Concomitant]
  4. TOPIRAMATE [Concomitant]
     Route: 048
  5. ONDANSETRON [Concomitant]
  6. MULTIVITAMIN [Concomitant]
  7. MONTELUKAST [Concomitant]
     Route: 048
  8. MOMETASONE [Concomitant]
  9. MODAFINIL [Concomitant]
     Route: 048
  10. GABAPENTIN [Concomitant]
     Route: 048
  11. GABAPENTIN [Concomitant]
     Route: 048
  12. FLUTICASONE NASAL SPRAY [Concomitant]
  13. DULOXETINE [Concomitant]
     Route: 048
  14. DALFAMPRIDINE [Concomitant]
     Route: 048
  15. BACLOFEN [Concomitant]
     Route: 048
  16. AMITRIPTYLINE [Concomitant]
     Route: 048

REACTIONS (4)
  - Pulmonary embolism [Not Recovered/Not Resolved]
  - Migraine [Not Recovered/Not Resolved]
  - Sleep apnoea syndrome [Not Recovered/Not Resolved]
  - Restless legs syndrome [Not Recovered/Not Resolved]
